FAERS Safety Report 13256630 (Version 1)
Quarter: 2017Q1

REPORT INFORMATION
  Report Type: Spontaneous
  Country: US (occurrence: US)
  Receive Date: 20170220
  Receipt Date: 20170220
  Transmission Date: 20170428
  Serious: Yes (Disabling, Other)
  Sender: FDA-Public Use
  Company Number: None

PATIENT
  Age: 38 Year
  Sex: Female
  Weight: 66.6 kg

DRUGS (16)
  1. FISH OIL [Concomitant]
     Active Substance: FISH OIL
  2. VITAMIN D [Concomitant]
     Active Substance: CHOLECALCIFEROL
  3. OMNARIS [Concomitant]
     Active Substance: CICLESONIDE
  4. GARLIC. [Concomitant]
     Active Substance: GARLIC
  5. ZYRTEC [Concomitant]
     Active Substance: CETIRIZINE HYDROCHLORIDE
  6. B6 [Concomitant]
     Active Substance: PYRIDOXINE HYDROCHLORIDE
  7. VITAMIN C [Concomitant]
     Active Substance: ASCORBIC ACID
  8. BROMELINE [Concomitant]
  9. SULFAMETH/TMP 800/1600MG TB [Suspect]
     Active Substance: SULFAMETHOXAZOLE\TRIMETHOPRIM
     Indication: URINARY TRACT INFECTION
     Dosage: ?          QUANTITY:14 TABLET(S);?
     Route: 048
     Dates: start: 20170124, end: 20170131
  10. XOPENEX [Concomitant]
     Active Substance: LEVALBUTEROL HYDROCHLORIDE
  11. PROBIOTICS [Concomitant]
     Active Substance: PROBIOTICS NOS
  12. VITAMIN B12 [Concomitant]
     Active Substance: CYANOCOBALAMIN
  13. ZINC. [Concomitant]
     Active Substance: ZINC
  14. TURMERIC [Concomitant]
     Active Substance: TURMERIC
  15. QUERCITAIN [Concomitant]
  16. GINGER. [Concomitant]
     Active Substance: GINGER

REACTIONS (15)
  - Tremor [None]
  - Thirst [None]
  - Arthralgia [None]
  - Hypersensitivity [None]
  - Tunnel vision [None]
  - Headache [None]
  - Hunger [None]
  - Anxiety [None]
  - Hypertension [None]
  - Insomnia [None]
  - Muscular weakness [None]
  - Extrasystoles [None]
  - Dizziness [None]
  - Heart rate increased [None]
  - Fatigue [None]

NARRATIVE: CASE EVENT DATE: 20170124
